FAERS Safety Report 4408506-6 (Version None)
Quarter: 2004Q3

REPORT INFORMATION
  Report Type: 
  Country: None (occurrence: None)
  Receive Date: 20040722
  Receipt Date: 20040712
  Transmission Date: 20050211
  Serious: Yes (Hospitalization)
  Sender: FDA-Public Use
  Company Number: 2004UW14424

PATIENT
  Age: 81 Year
  Sex: Female

DRUGS (8)
  1. LOSEC [Suspect]
     Dosage: 20 MG PO
     Route: 048
     Dates: start: 20040101
  2. ASAPHEN [Concomitant]
  3. CALCIUM [Concomitant]
  4. VITAMIN D [Concomitant]
  5. COLACE [Concomitant]
  6. IMOVANE [Concomitant]
  7. VITALUX [Concomitant]
  8. FUROSEMIDE [Concomitant]

REACTIONS (1)
  - INAPPROPRIATE ANTIDIURETIC HORMONE SECRETION [None]
